FAERS Safety Report 5732213-0 (Version None)
Quarter: 2008Q2

REPORT INFORMATION
  Report Type: 
  Country: None (occurrence: None)
  Receive Date: 20080508
  Receipt Date: 20080501
  Transmission Date: 20081010
  Serious: No
  Sender: FDA-Public Use
  Company Number: US-BOEHRINGER INGELHEIM GMBH, GERMANY-2008-BP-06901BP

PATIENT
  Age: 60 Year
  Sex: Female

DRUGS (7)
  1. MIRAPEX [Suspect]
     Indication: PARKINSON'S DISEASE
     Route: 048
     Dates: start: 20030101, end: 20080301
  2. SINEMET [Suspect]
     Indication: PARKINSON'S DISEASE
     Route: 048
  3. NEXIUM [Concomitant]
     Route: 048
  4. CYMBALTA [Concomitant]
  5. VYTORIN [Concomitant]
  6. SINEMET TIME RELEASE [Concomitant]
  7. ESTRADIOL [Concomitant]

REACTIONS (7)
  - COMPULSIVE SHOPPING [None]
  - GAMBLING [None]
  - HALLUCINATION, VISUAL [None]
  - HOT FLUSH [None]
  - MENOPAUSE [None]
  - NIGHT SWEATS [None]
  - WEIGHT INCREASED [None]
